FAERS Safety Report 9253702 (Version 3)
Quarter: 2013Q2

REPORT INFORMATION
  Report Type: Spontaneous
  Country: US (occurrence: US)
  Receive Date: 20130425
  Receipt Date: 20130531
  Transmission Date: 20140414
  Serious: No
  Sender: FDA-Public Use
  Company Number: US-009507513-1304USA014294

PATIENT
  Age: 58 Year
  Sex: Male
  Weight: 83.9 kg

DRUGS (4)
  1. VICTRELIS [Suspect]
     Dosage: TAKE 800MG ( 4-200MG CAPSULES BY MOUTH THREE TIMES A DAY (EVERY 7-9 HOURS) START WEEK 5
     Route: 048
  2. RIBAPAK [Interacting]
     Dosage: 1200/DAY
  3. PEGASYS [Interacting]
     Dosage: UNK
  4. ADVIL [Concomitant]

REACTIONS (5)
  - Muscular dystrophy [Unknown]
  - Influenza [Unknown]
  - Dysgeusia [Unknown]
  - Endodontic procedure [Recovered/Resolved]
  - Drug interaction [Unknown]
